FAERS Safety Report 8761129 (Version 2)
Quarter: 2012Q4

REPORT INFORMATION
  Report Type: 
  Country: US (occurrence: US)
  Receive Date: 20120830
  Receipt Date: 20120907
  Transmission Date: 20130627
  Serious: Yes (Hospitalization)
  Sender: FDA-Public Use
  Company Number: US-ASTRAZENECA-2012SE60855

PATIENT
  Age: 40 Year
  Sex: Male

DRUGS (2)
  1. SYMBICORT PMDI [Suspect]
     Dosage: UNKNOWN
     Route: 055
  2. METOPROLOL [Concomitant]

REACTIONS (7)
  - Mallory-Weiss syndrome [Unknown]
  - Haematemesis [Unknown]
  - Influenza [Unknown]
  - Vascular injury [Unknown]
  - Vomiting [Unknown]
  - Ulcer [Unknown]
  - Intentional drug misuse [Unknown]
